FAERS Safety Report 23638831 (Version 1)
Quarter: 2024Q1

REPORT INFORMATION
  Report Type: Spontaneous
  Country: JP (occurrence: None)
  Receive Date: 20240315
  Receipt Date: 20240315
  Transmission Date: 20240409
  Serious: Yes (Death, Life-Threatening, Hospitalization)
  Sender: FDA-Public Use
  Company Number: 2024A013413

PATIENT
  Age: 28350 Day
  Sex: Male
  Weight: 59 kg

DRUGS (4)
  1. IMFINZI [Suspect]
     Active Substance: DURVALUMAB
     Indication: Bile duct cancer
     Route: 041
     Dates: start: 20231010, end: 20231128
  2. GEMCITABINE HYDROCHLORIDE [Concomitant]
     Active Substance: GEMCITABINE HYDROCHLORIDE
     Indication: Bile duct cancer
     Dosage: DOSE UNKNOWN1600.0MG UNKNOWN
     Dates: start: 20231010, end: 20231205
  3. CISPLATIN [Concomitant]
     Active Substance: CISPLATIN
     Indication: Bile duct cancer
     Dosage: DOSE UNKNOWN25.0MG UNKNOWN
     Dates: start: 20231010, end: 20231205
  4. OK-432 [Concomitant]
     Active Substance: OK-432

REACTIONS (3)
  - Interstitial lung disease [Fatal]
  - Pneumonia aspiration [Recovering/Resolving]
  - Pneumonia [Recovering/Resolving]

NARRATIVE: CASE EVENT DATE: 20231213
